FAERS Safety Report 7984993-1 (Version None)
Quarter: 2011Q4

REPORT INFORMATION
  Report Type: 
  Country: None (occurrence: None)
  Receive Date: 20111216
  Receipt Date: 20111031
  Transmission Date: 20120403
  Serious: No
  Sender: FDA-Public Use
  Company Number: US-ALLERGAN-1114392US

PATIENT
  Age: 50 Year
  Sex: Female

DRUGS (1)
  1. LATISSE [Suspect]
     Indication: HYPOTRICHOSIS
     Dosage: 2 GTT, QPM
     Route: 061
     Dates: start: 20111020, end: 20111026

REACTIONS (3)
  - FACE OEDEMA [None]
  - PRURITUS [None]
  - SWELLING FACE [None]
